FAERS Safety Report 7420491-1 (Version None)
Quarter: 2011Q2

REPORT INFORMATION
  Report Type: 
  Country: None (occurrence: None)
  Receive Date: 20110418
  Receipt Date: 20110411
  Transmission Date: 20111010
  Serious: Yes (Hospitalization)
  Sender: FDA-Public Use
  Company Number: GR-TEVA-276260ISR

PATIENT
  Sex: Male

DRUGS (14)
  1. GOSERELIN [Concomitant]
     Indication: HORMONE THERAPY
     Dates: start: 20060201
  2. CARBOPLATIN [Concomitant]
     Indication: PROSTATE CANCER
     Dosage: 16.9524 MILLIGRAM;
     Route: 042
     Dates: start: 20110103
  3. PREDNISOLONE [Suspect]
     Indication: PROSTATE CANCER METASTATIC
     Route: 048
     Dates: start: 20091112
  4. PACLITAXEL [Concomitant]
     Indication: PROSTATE CANCER METASTATIC
     Dosage: 6.4286 MILLIGRAM;
     Route: 042
     Dates: start: 20110103
  5. AMLODIPINE BESYLATE [Concomitant]
     Indication: CORONARY ARTERY STENOSIS
     Dosage: 5 MILLIGRAM;
     Route: 048
     Dates: start: 20040101
  6. CARVEDILOL [Concomitant]
     Indication: HYPERTENSION
     Dosage: 12.5 MILLIGRAM;
     Route: 048
     Dates: start: 20040101
  7. OMEPRAZOLE [Concomitant]
     Indication: GASTROINTESTINAL DISORDER THERAPY
     Dosage: 20 MILLIGRAM;
     Route: 048
     Dates: start: 20091201
  8. AMLODIPINE BESYLATE [Concomitant]
  9. PRAVASTATIN [Concomitant]
     Indication: HYPERCHOLESTEROLAEMIA
     Dosage: 40 MILLIGRAM;
     Route: 048
     Dates: start: 20040101
  10. CLOPIDOGREL [Concomitant]
     Indication: MYOCARDIAL INFARCTION
     Dosage: 75 MILLIGRAM;
     Route: 048
     Dates: start: 20040101
  11. ABIRATERONE ACETATE- BLINDED (ABIRATERONE ACETATE) / PLACEBO [Suspect]
     Indication: PROSTATE CANCER METASTATIC
     Route: 048
     Dates: start: 20091112, end: 20101209
  12. ISOSORBIDE MONONITRATE [Concomitant]
     Indication: MYOCARDIAL INFARCTION
     Dosage: 60 MILLIGRAM;
     Route: 048
     Dates: start: 20040101
  13. ISOSORBIDE MONONITRATE [Concomitant]
     Indication: CORONARY ARTERY STENOSIS
  14. GOSERELIN [Concomitant]
     Indication: PROSTATE CANCER
     Dosage: .12 MILLIGRAM;
     Route: 058
     Dates: start: 20091112

REACTIONS (3)
  - NEUTROPENIA [None]
  - PYREXIA [None]
  - FATIGUE [None]
